FAERS Safety Report 23196764 (Version 1)
Quarter: 2023Q4

REPORT INFORMATION
  Report Type: Spontaneous
  Country: DE (occurrence: None)
  Receive Date: 20231117
  Receipt Date: 20231117
  Transmission Date: 20240110
  Serious: Yes (Other)
  Sender: FDA-Public Use
  Company Number: 2023A246375

PATIENT
  Age: 72 Year
  Sex: Male

DRUGS (3)
  1. ACLIDINIUM BROMIDE [Suspect]
     Active Substance: ACLIDINIUM BROMIDE
     Indication: Product used for unknown indication
     Dates: start: 202309, end: 20231004
  2. ATORVASTATIN [Suspect]
     Active Substance: ATORVASTATIN
  3. HERBALS [Suspect]
     Active Substance: HERBALS

REACTIONS (1)
  - Diplopia [Unknown]
